FAERS Safety Report 15554513 (Version 2)
Quarter: 2018Q4

REPORT INFORMATION
  Report Type: Other
  Country: NL (occurrence: NL)
  Receive Date: 20181026
  Receipt Date: 20181218
  Transmission Date: 20190205
  Serious: Yes (Other)
  Sender: FDA-Public Use
  Company Number: NL-APOTEX-2018AP023168

PATIENT
  Age: 40 Year
  Sex: Male

DRUGS (2)
  1. PAROXETINE. [Suspect]
     Active Substance: PAROXETINE
     Dosage: 20 MG, QD
     Route: 065
  2. PAROXETINE. [Suspect]
     Active Substance: PAROXETINE
     Indication: DEPRESSION
     Dosage: 20 MG, QD
     Route: 065
     Dates: start: 200805, end: 201011

REACTIONS (8)
  - Sexual dysfunction [Recovering/Resolving]
  - Genital hypoaesthesia [Recovering/Resolving]
  - Ejaculation failure [Recovering/Resolving]
  - Hypoaesthesia [Recovering/Resolving]
  - Anosmia [Recovered/Resolved]
  - Ageusia [Recovered/Resolved]
  - Sensory loss [Recovered/Resolved]
  - Erectile dysfunction [Recovering/Resolving]

NARRATIVE: CASE EVENT DATE: 200805
